FAERS Safety Report 19283542 (Version 1)
Quarter: 2021Q2

REPORT INFORMATION
  Report Type: Report from Study
  Country: IT (occurrence: IT)
  Receive Date: 20210520
  Receipt Date: 20210520
  Transmission Date: 20210717
  Serious: Yes (Other)
  Sender: FDA-Public Use
  Company Number: IT-ASTRAZENECA-2021A425202

PATIENT
  Age: 70 Year
  Sex: Male

DRUGS (4)
  1. AVELUMAB [Suspect]
     Active Substance: AVELUMAB
     Route: 065
  2. LANSOPRAZOLE. [Concomitant]
     Active Substance: LANSOPRAZOLE
  3. DURVALUMAB. [Suspect]
     Active Substance: DURVALUMAB
     Indication: SQUAMOUS CELL CARCINOMA
     Route: 042
  4. ATEZOLIZUMAB. [Suspect]
     Active Substance: ATEZOLIZUMAB
     Route: 065

REACTIONS (1)
  - Lumbar vertebral fracture [Unknown]
